FAERS Safety Report 4805745-7 (Version None)
Quarter: 2005Q4

REPORT INFORMATION
  Report Type: 
  Country: None (occurrence: None)
  Receive Date: 20051021
  Receipt Date: 20051011
  Transmission Date: 20060501
  Serious: Yes (Hospitalization)
  Sender: FDA-Public Use
  Company Number: FR-ROCHE-420616

PATIENT
  Age: 69 Year
  Sex: Male

DRUGS (7)
  1. ROCEPHIN [Suspect]
     Route: 065
     Dates: start: 20050819, end: 20050819
  2. PERFALGAN [Interacting]
     Indication: DRUG USE FOR UNKNOWN INDICATION
     Route: 042
     Dates: start: 20050819, end: 20050819
  3. OFLOCET [Interacting]
     Route: 042
     Dates: start: 20050819, end: 20050819
  4. GENTAMICIN SULFATE [Interacting]
     Route: 065
     Dates: start: 20050819, end: 20050819
  5. PREVISCAN [Suspect]
     Indication: DRUG USE FOR UNKNOWN INDICATION
     Dosage: LONG TERM TREATMENT.
     Route: 048
     Dates: end: 20050818
  6. LASILIX [Interacting]
     Indication: DRUG USE FOR UNKNOWN INDICATION
     Dosage: LONG TERM TREATMENT.
     Route: 048
     Dates: end: 20050819
  7. LASILIX [Interacting]
     Route: 048
     Dates: start: 20050820

REACTIONS (3)
  - DRUG INTERACTION [None]
  - INTERNATIONAL NORMALISED RATIO INCREASED [None]
  - PROTHROMBIN TIME SHORTENED [None]
